FAERS Safety Report 7717741-0 (Version None)
Quarter: 2011Q3

REPORT INFORMATION
  Report Type: 
  Country: None (occurrence: None)
  Receive Date: 20110830
  Receipt Date: 20110802
  Transmission Date: 20111222
  Serious: Yes (Hospitalization)
  Sender: FDA-Public Use
  Company Number: US-AMGEN-USACT2011039112

PATIENT
  Age: 51 Year
  Sex: Female
  Weight: 69.841 kg

DRUGS (13)
  1. HYCODAN [Concomitant]
     Indication: COUGH
     Dosage: 5 UNK, UNK
     Route: 048
     Dates: start: 20110301
  2. COMPAZINE [Concomitant]
     Indication: NAUSEA
     Dosage: 10 MG, UNK
     Dates: start: 20110701
  3. CLINDAMYCIN [Concomitant]
     Indication: RASH
     Dosage: 1 UNK, UNK
     Route: 061
     Dates: start: 20110708
  4. FOLIC ACID [Concomitant]
     Dosage: 1 MG, UNK
     Route: 048
     Dates: start: 20110603
  5. PEMETREXED [Concomitant]
     Dosage: 950 MG, UNK
     Route: 042
     Dates: start: 20110701
  6. VITAMIN B-12 [Concomitant]
     Dosage: 1 MG, UNK
     Route: 048
     Dates: start: 20110301
  7. CARBOPLATIN [Concomitant]
     Dosage: 694 MG, UNK
     Route: 042
     Dates: start: 20110701
  8. INTEGRA [Concomitant]
     Dosage: 1 UNK, UNK
     Route: 048
     Dates: start: 20110401
  9. MAGNESIUM [Concomitant]
     Dosage: 3 G, UNK
     Route: 042
     Dates: start: 20110715, end: 20110716
  10. PANITUMUMAB [Suspect]
     Indication: LUNG NEOPLASM MALIGNANT
     Dosage: 715 MG, UNK
     Route: 042
     Dates: start: 20110701
  11. DECADRON [Concomitant]
     Indication: NAUSEA
     Dosage: 20 MG, UNK
     Dates: start: 20110714, end: 20110714
  12. ZOFRAN [Concomitant]
     Indication: NAUSEA
     Dosage: 8 MG, UNK
     Dates: start: 20110714, end: 20110714
  13. ZUPLENZ [Concomitant]
     Indication: NAUSEA
     Dosage: 8 MG, UNK
     Dates: start: 20110630

REACTIONS (2)
  - PLEURAL EFFUSION [None]
  - EMBOLISM [None]
